FAERS Safety Report 11097698 (Version 1)
Quarter: 2015Q2

REPORT INFORMATION
  Report Type: Spontaneous
  Country: DZ (occurrence: DZ)
  Receive Date: 20150507
  Receipt Date: 20150507
  Transmission Date: 20150821
  Serious: Yes (Other)
  Sender: FDA-Public Use
  Company Number: DZ-PFIZER INC-2015153335

PATIENT
  Age: 39 Year

DRUGS (1)
  1. SUTENT [Suspect]
     Active Substance: SUNITINIB MALATE
     Indication: METASTATIC RENAL CELL CARCINOMA
     Dosage: 50 MG, CYCLIC (4WEEKS ON /2 WEEKS OFF)

REACTIONS (11)
  - Mucosal inflammation [Unknown]
  - Alopecia [Unknown]
  - Asthenia [Unknown]
  - Nausea [Unknown]
  - Epistaxis [Unknown]
  - Thyroiditis [Recovering/Resolving]
  - Palmar-plantar erythrodysaesthesia syndrome [Unknown]
  - Hypertension [Unknown]
  - Vomiting [Unknown]
  - Hair colour changes [Unknown]
  - Eyelid oedema [Unknown]
